FAERS Safety Report 5491901-4 (Version None)
Quarter: 2007Q4

REPORT INFORMATION
  Report Type: 
  Country: None (occurrence: None)
  Receive Date: 20071022
  Receipt Date: 20071011
  Transmission Date: 20080405
  Serious: Yes (Other)
  Sender: FDA-Public Use
  Company Number: JP-JNJFOC-20070503193

PATIENT
  Sex: Female
  Weight: 52 kg

DRUGS (27)
  1. ITRIZOLE [Suspect]
     Indication: PROPHYLAXIS
     Route: 048
  2. VELCADE [Suspect]
     Route: 042
  3. VELCADE [Suspect]
     Route: 042
  4. VELCADE [Suspect]
     Route: 042
  5. VELCADE [Suspect]
     Route: 042
  6. VELCADE [Suspect]
     Route: 042
  7. VELCADE [Suspect]
     Route: 042
  8. VELCADE [Suspect]
     Route: 042
  9. VELCADE [Suspect]
     Route: 042
  10. VELCADE [Suspect]
     Route: 042
  11. VELCADE [Suspect]
     Indication: MULTIPLE MYELOMA
     Route: 042
  12. DEXAMETHASONE 0.5MG TAB [Suspect]
     Route: 048
  13. DEXAMETHASONE 0.5MG TAB [Suspect]
     Indication: DRUG USE FOR UNKNOWN INDICATION
     Route: 048
  14. DEXAMETHASONE 0.5MG TAB [Suspect]
     Route: 042
  15. RISEDRONATE SODIUM [Concomitant]
     Indication: OSTEOPOROSIS
     Route: 048
  16. ONEALFA [Concomitant]
     Indication: OSTEOPOROSIS
     Route: 048
  17. ZOLPIDEM [Concomitant]
     Indication: INSOMNIA
     Route: 048
  18. BAKTAR [Concomitant]
     Indication: PNEUMOCYSTIS JIROVECI PNEUMONIA
     Route: 048
  19. ZYLORIC [Concomitant]
     Indication: HYPERURICAEMIA
     Route: 048
  20. MAGLAX [Concomitant]
     Indication: CONSTIPATION
     Route: 048
  21. OMEPRAL [Concomitant]
     Indication: ABDOMINAL PAIN UPPER
     Route: 048
  22. NAUZELIN [Concomitant]
     Indication: NAUSEA
     Route: 048
  23. MODACIN [Concomitant]
     Indication: PNEUMONIA BACTERIAL
     Route: 042
  24. MECOBALAMIN [Concomitant]
     Indication: NEUROPATHY PERIPHERAL
     Route: 048
  25. SULINDAC [Concomitant]
     Indication: NEUROPATHY PERIPHERAL
     Route: 048
  26. OXYCODONE HYDROCHLORIDE [Concomitant]
     Indication: NEUROPATHY PERIPHERAL
     Route: 048
  27. MORPHINE HCL ELIXIR [Concomitant]
     Indication: NEUROPATHY PERIPHERAL
     Route: 048

REACTIONS (5)
  - ABDOMINAL PAIN UPPER [None]
  - BRONCHOPNEUMONIA [None]
  - NAUSEA [None]
  - NEUROPATHY PERIPHERAL [None]
  - THROMBOCYTOPENIA [None]
